FAERS Safety Report 11217717 (Version 2)
Quarter: 2015Q3

REPORT INFORMATION
  Report Type: Report from Study
  Country: US (occurrence: None)
  Receive Date: 20150623
  Receipt Date: 20150817
  Transmission Date: 20151125
  Serious: Yes (Hospitalization)
  Sender: FDA-Public Use
  Company Number: US-002018

PATIENT
  Age: 59 Year
  Sex: Female
  Weight: 51.71 kg

DRUGS (3)
  1. GATTEX [Suspect]
     Active Substance: TEDUGLUTIDE\WATER
     Indication: SHORT-BOWEL SYNDROME
     Route: 058
     Dates: start: 20131204
  2. SOLUTIONS FOR PARENTERAL NUTRITION [Concomitant]
     Active Substance: AMINO ACIDS\DEXTROSE\ELECTROLYTES NOS
  3. ELECTROLYTE SOLUTIONS [Concomitant]
     Active Substance: UNSPECIFIED INGREDIENT
     Dosage: DF SUBCUTANEOUS
     Route: 058

REACTIONS (8)
  - No therapeutic response [None]
  - Pericardial effusion [None]
  - Blood urea increased [None]
  - Urine output decreased [None]
  - Weight decreased [None]
  - Renal impairment [None]
  - Cardiac failure congestive [None]
  - Pleural effusion [None]

NARRATIVE: CASE EVENT DATE: 201312
